FAERS Safety Report 20722263 (Version 3)
Quarter: 2023Q2

REPORT INFORMATION
  Report Type: Spontaneous
  Country: US (occurrence: US)
  Receive Date: 20220418
  Receipt Date: 20230414
  Transmission Date: 20230722
  Serious: Yes (Hospitalization, Other)
  Sender: FDA-Public Use
  Company Number: US-PFIZER INC-202101260017

PATIENT
  Age: 78 Year
  Sex: Female
  Weight: 61.224 kg

DRUGS (4)
  1. IBRANCE [Suspect]
     Active Substance: PALBOCICLIB
     Indication: Breast cancer metastatic
     Dosage: ONCE A DAY FOR 21 DAYS ON, 7 DAYS OFF
     Route: 048
     Dates: start: 202002
  2. FASLODEX [Concomitant]
     Active Substance: FULVESTRANT
     Indication: Breast cancer metastatic
     Dosage: ONCE A MONTH 2 GEL SHOT
     Route: 030
     Dates: start: 202002
  3. XGEVA [Concomitant]
     Active Substance: DENOSUMAB
     Indication: Breast cancer metastatic
     Dosage: UNK, MONTHLY
     Route: 058
     Dates: start: 202002
  4. LEVOTHYROXINE SODIUM [Concomitant]
     Active Substance: LEVOTHYROXINE SODIUM
     Indication: Breast cancer metastatic
     Dosage: 25 UG, DAILY
     Dates: start: 202103

REACTIONS (17)
  - Myalgia [Not Recovered/Not Resolved]
  - Brain fog [Not Recovered/Not Resolved]
  - Dizziness [Not Recovered/Not Resolved]
  - Fatigue [Not Recovered/Not Resolved]
  - Asthenia [Not Recovered/Not Resolved]
  - Arthralgia [Not Recovered/Not Resolved]
  - Pain [Not Recovered/Not Resolved]
  - Muscular weakness [Not Recovered/Not Resolved]
  - Pain in jaw [Not Recovered/Not Resolved]
  - Malaise [Unknown]
  - Dyspnoea [Unknown]
  - Gait disturbance [Unknown]
  - Memory impairment [Unknown]
  - Cardiac valve disease [Unknown]
  - Palpitations [Unknown]
  - Thyroid disorder [Unknown]
  - Product dose omission issue [Unknown]
